FAERS Safety Report 19079245 (Version 1)
Quarter: 2021Q1

REPORT INFORMATION
  Report Type: Spontaneous
  Country: DE (occurrence: DE)
  Receive Date: 20210331
  Receipt Date: 20210331
  Transmission Date: 20210420
  Serious: Yes (Other)
  Sender: FDA-Public Use
  Company Number: DE-TEVA-2021-DE-1895302

PATIENT
  Sex: Female

DRUGS (1)
  1. PREDNISON 20MG [Suspect]
     Active Substance: PREDNISONE
     Indication: UVEITIS
     Dosage: START WITH 70MG, NOW REDUCE BY 10MG PER WEEK. CURRENTLY 40MG / D
     Dates: start: 202102

REACTIONS (6)
  - Cushing^s syndrome [Unknown]
  - Palpitations [Unknown]
  - Erythema [Unknown]
  - Tremor [Unknown]
  - Muscle tightness [Unknown]
  - Ataxia [Unknown]

NARRATIVE: CASE EVENT DATE: 202103
